FAERS Safety Report 11212407 (Version 1)
Quarter: 2015Q2

REPORT INFORMATION
  Report Type: Spontaneous
  Country: NL (occurrence: NL)
  Receive Date: 20150623
  Receipt Date: 20150623
  Transmission Date: 20150821
  Serious: Yes (Death)
  Sender: FDA-Public Use
  Company Number: NL-CIPLA LTD.-2015NL05014

PATIENT

DRUGS (5)
  1. GEMCITABINE [Suspect]
     Active Substance: GEMCITABINE\GEMCITABINE HYDROCHLORIDE
     Indication: NON-SMALL CELL LUNG CANCER STAGE III
     Dosage: 1125 MG/M2, ON DAY 1 AND 8 OF EACH 21-DAY CYCLE
     Route: 042
  2. DEXAMETHASONE. [Concomitant]
     Active Substance: DEXAMETHASONE
     Indication: NON-SMALL CELL LUNG CANCER STAGE III
     Dosage: 8 MG TWICE A DAY ON DAYS 1 AND 2 OF EACH CYCLE
     Route: 065
  3. APREPITANT. [Concomitant]
     Active Substance: APREPITANT
     Indication: NON-SMALL CELL LUNG CANCER STAGE III
     Dosage: 125 MG ON DAY 1 AND 80 MG ON DAYS 2 AND 3.
     Route: 065
  4. ONDANSETRON [Concomitant]
     Active Substance: ONDANSETRON
     Indication: NON-SMALL CELL LUNG CANCER STAGE III
     Dosage: MG TWICE DAILY ON DAYS 1 AND 2
     Route: 065
  5. CARBOPLATIN. [Suspect]
     Active Substance: CARBOPLATIN
     Indication: NON-SMALL CELL LUNG CANCER STAGE III
     Route: 065

REACTIONS (1)
  - Radiation pneumonitis [Fatal]
